FAERS Safety Report 14046901 (Version 14)
Quarter: 2018Q3

REPORT INFORMATION
  Report Type: Report from Study
  Country: CA (occurrence: CA)
  Receive Date: 20171005
  Receipt Date: 20180720
  Transmission Date: 20181010
  Serious: Yes (Hospitalization, Other)
  Sender: FDA-Public Use
  Company Number: PHHY2015CA100234

PATIENT
  Age: 56 Year
  Sex: Male

DRUGS (8)
  1. SANDOSTATIN LAR DEPOT [Suspect]
     Active Substance: OCTREOTIDE ACETATE
     Dosage: 30 MG, QMO (EVERY 4 WEEKS)
     Route: 030
     Dates: start: 20161004, end: 20161004
  2. SANDOSTATIN LAR DEPOT [Suspect]
     Active Substance: OCTREOTIDE ACETATE
     Dosage: 20 MG, QMO (EVERY 4 WEEKS)
     Route: 030
     Dates: start: 20161101, end: 20161202
  3. SANDOSTATIN LAR DEPOT [Suspect]
     Active Substance: OCTREOTIDE ACETATE
     Dosage: 30 MG, QMO (EVERY 4 WEEKS)
     Route: 030
     Dates: start: 20170127
  4. SANDOSTATIN LAR DEPOT [Suspect]
     Active Substance: OCTREOTIDE ACETATE
     Indication: CARCINOID TUMOUR
     Dosage: 20 MG, QMO (EVERY 4 WEEKS)
     Route: 030
     Dates: start: 20150720, end: 20160906
  5. SANDOSTATIN [Suspect]
     Active Substance: OCTREOTIDE ACETATE
     Indication: NEUROENDOCRINE TUMOUR
     Dosage: UNK, TID (FOR 1 WEEK)
     Route: 058
     Dates: start: 20150713, end: 201507
  6. MORPHINE [Suspect]
     Active Substance: MORPHINE
     Indication: PRODUCT USED FOR UNKNOWN INDICATION
     Dosage: UNK
     Route: 065
  7. LANREOTIDE [Suspect]
     Active Substance: LANREOTIDE
     Indication: PRODUCT USED FOR UNKNOWN INDICATION
     Dosage: UNK
     Route: 065
  8. FERAMAX [Concomitant]
     Active Substance: IRON\POLYSACCHARIDES
     Indication: PRODUCT USED FOR UNKNOWN INDICATION
     Dosage: 150 MG, 2 TAB BID
     Route: 065

REACTIONS (41)
  - Lethargy [Unknown]
  - Gastrointestinal haemorrhage [Unknown]
  - Weight decreased [Unknown]
  - Abdominal distension [Unknown]
  - Bile duct obstruction [Unknown]
  - Vomiting [Recovering/Resolving]
  - Haemorrhage [Recovered/Resolved]
  - Syncope [Unknown]
  - Pain [Unknown]
  - Abdominal pain [Unknown]
  - Chills [Unknown]
  - Pyrexia [Recovering/Resolving]
  - Biliary tract infection [Unknown]
  - Platelet count increased [Unknown]
  - Anaemia [Unknown]
  - Influenza [Not Recovered/Not Resolved]
  - Sepsis [Unknown]
  - Infection [Unknown]
  - Malignant neoplasm progression [Unknown]
  - Musculoskeletal pain [Unknown]
  - Red blood cell count decreased [Unknown]
  - Myalgia [Unknown]
  - Hyperhidrosis [Unknown]
  - Blood pressure increased [Unknown]
  - Body temperature decreased [Unknown]
  - Malaise [Unknown]
  - Haematocrit decreased [Unknown]
  - Serum ferritin decreased [Unknown]
  - Blood alkaline phosphatase increased [Unknown]
  - Blood glucose increased [Unknown]
  - Injection site haemorrhage [Recovered/Resolved]
  - Gamma-glutamyltransferase increased [Unknown]
  - Fatigue [Not Recovered/Not Resolved]
  - Diarrhoea [Not Recovered/Not Resolved]
  - Dizziness [Unknown]
  - Escherichia infection [Unknown]
  - Nausea [Recovering/Resolving]
  - Haemoglobin decreased [Not Recovered/Not Resolved]
  - Blood pressure systolic increased [Unknown]
  - White blood cell count increased [Unknown]
  - Injection site pain [Recovered/Resolved]

NARRATIVE: CASE EVENT DATE: 20150814
